FAERS Safety Report 19613828 (Version 1)
Quarter: 2021Q3

REPORT INFORMATION
  Report Type: Spontaneous
  Country: GB (occurrence: GB)
  Receive Date: 20210727
  Receipt Date: 20210727
  Transmission Date: 20211014
  Serious: Yes (Other)
  Sender: FDA-Public Use
  Company Number: GB-ABBVIE-21K-167-4003909-00

PATIENT
  Age: 26 Year
  Sex: Male
  Weight: 88 kg

DRUGS (3)
  1. DEPAKOTE [Suspect]
     Active Substance: DIVALPROEX SODIUM
     Indication: PSYCHOTIC DISORDER
     Route: 065
     Dates: start: 20210714, end: 202107
  2. SERTRALINE [Concomitant]
     Active Substance: SERTRALINE HYDROCHLORIDE
     Indication: PRODUCT USED FOR UNKNOWN INDICATION
     Dates: start: 20210413
  3. ZOPICLONE [Concomitant]
     Active Substance: ZOPICLONE
     Indication: PRODUCT USED FOR UNKNOWN INDICATION
     Dates: start: 20210416, end: 20210423

REACTIONS (3)
  - CSF white blood cell count decreased [Recovered/Resolved]
  - Red blood cell abnormality [Recovered/Resolved]
  - Band neutrophil count decreased [Recovered/Resolved]

NARRATIVE: CASE EVENT DATE: 20210714
